FAERS Safety Report 14720962 (Version 1)
Quarter: 2018Q1

REPORT INFORMATION
  Report Type: Spontaneous
  Country: US (occurrence: US)
  Receive Date: 20180330
  Receipt Date: 20180330
  Transmission Date: 20180509
  Serious: Yes (Other)
  Sender: FDA-Public Use
  Company Number: None

PATIENT
  Age: 63 Year
  Sex: Female
  Weight: 70.3 kg

DRUGS (2)
  1. EMEND (FOSAPREPITANT DIMEGLUMINE) [Suspect]
     Active Substance: FOSAPREPITANT DIMEGLUMINE
     Indication: PROPHYLAXIS OF NAUSEA AND VOMITING
     Dosage: ?          OTHER FREQUENCY:ONCE;?
  2. PACLITAXEL. [Suspect]
     Active Substance: PACLITAXEL
     Indication: ENDOMETRIAL CANCER
     Route: 040
     Dates: start: 20180215, end: 20180215

REACTIONS (5)
  - Back pain [None]
  - Abdominal pain upper [None]
  - Flushing [None]
  - Feeling abnormal [None]
  - Infusion related reaction [None]

NARRATIVE: CASE EVENT DATE: 20180215
